FAERS Safety Report 11051047 (Version 1)
Quarter: 2015Q2

REPORT INFORMATION
  Report Type: Spontaneous
  Country: US (occurrence: US)
  Receive Date: 20150421
  Receipt Date: 20150421
  Transmission Date: 20150821
  Serious: No
  Sender: FDA-Public Use
  Company Number: US-TEVA-474817USA

PATIENT
  Sex: Male

DRUGS (2)
  1. GEMFIBROZIL. [Interacting]
     Active Substance: GEMFIBROZIL
  2. FENOFIBRATE. [Suspect]
     Active Substance: FENOFIBRATE

REACTIONS (14)
  - Asthenia [Unknown]
  - Weight decreased [Unknown]
  - Vision blurred [Unknown]
  - Sensory disturbance [Unknown]
  - Hyperhidrosis [Unknown]
  - Drug interaction [Unknown]
  - Nervous system disorder [Unknown]
  - Malaise [Unknown]
  - Dyspnoea [Unknown]
  - Vitamin B6 abnormal [Unknown]
  - Blood cholesterol increased [Unknown]
  - Burning sensation [Unknown]
  - Vitamin B12 abnormal [Unknown]
  - Influenza like illness [Unknown]
